FAERS Safety Report 20634058 (Version 3)
Quarter: 2022Q4

REPORT INFORMATION
  Report Type: Spontaneous
  Country: US (occurrence: US)
  Receive Date: 20220324
  Receipt Date: 20221107
  Transmission Date: 20230113
  Serious: No
  Sender: FDA-Public Use
  Company Number: US-BRISTOL-MYERS SQUIBB COMPANY-2022-010339

PATIENT
  Age: 62 Year
  Sex: Female

DRUGS (2)
  1. ORENCIA [Suspect]
     Active Substance: ABATACEPT
     Indication: Product used for unknown indication
     Dosage: INJECT 125MG (1 SYRINGE) SUBCUTANEOUSLY ONCE A WEEK
     Route: 058
  2. ORENCIA [Suspect]
     Active Substance: ABATACEPT
     Dosage: INJECT 125MG (1 SYRINGE) SUBCUTANEOUSLY ONCE A WEEK.
     Route: 058

REACTIONS (1)
  - Infection [Unknown]
